FAERS Safety Report 10174144 (Version 1)
Quarter: 2014Q2

REPORT INFORMATION
  Report Type: Spontaneous
  Country: US (occurrence: US)
  Receive Date: 20140515
  Receipt Date: 20140515
  Transmission Date: 20141212
  Serious: Yes (Other)
  Sender: FDA-Public Use
  Company Number: US-NOVOPROD-409806

PATIENT
  Age: 55 Year
  Sex: Female
  Weight: 54.88 kg

DRUGS (4)
  1. LEVEMIR FLEXPEN [Suspect]
     Indication: TYPE 2 DIABETES MELLITUS
     Dosage: 6 U, QD
     Route: 058
     Dates: start: 20140331
  2. LEVEMIR FLEXPEN [Suspect]
     Dosage: 8 U, QD
     Route: 058
     Dates: start: 201404
  3. LEVEMIR FLEXPEN [Suspect]
     Dosage: 10 U, QD
     Route: 058
     Dates: start: 201404, end: 20140502
  4. LEVEMIR FLEXPEN [Suspect]
     Dosage: 10 U QD
     Route: 058
     Dates: start: 20140506

REACTIONS (11)
  - Chest discomfort [Not Recovered/Not Resolved]
  - Dyspnoea [Not Recovered/Not Resolved]
  - Nasal congestion [Not Recovered/Not Resolved]
  - Cough [Not Recovered/Not Resolved]
  - Dysphonia [Not Recovered/Not Resolved]
  - Chills [Not Recovered/Not Resolved]
  - Asthenia [Not Recovered/Not Resolved]
  - Abdominal discomfort [Not Recovered/Not Resolved]
  - Dysgeusia [Not Recovered/Not Resolved]
  - Paraesthesia oral [Not Recovered/Not Resolved]
  - Blood glucose increased [Not Recovered/Not Resolved]
